FAERS Safety Report 18412874 (Version 3)
Quarter: 2021Q2

REPORT INFORMATION
  Report Type: Report from Study
  Country: US (occurrence: US)
  Receive Date: 20201021
  Receipt Date: 20210408
  Transmission Date: 20210717
  Serious: Yes (Other)
  Sender: FDA-Public Use
  Company Number: US-ARBOR PHARMACEUTICALS, LLC-US-2020ARB000724

PATIENT
  Age: 5 Year
  Sex: Male

DRUGS (5)
  1. TRIPTODUR [Suspect]
     Active Substance: TRIPTORELIN
     Dosage: UNK, SINGLE
     Route: 030
     Dates: start: 20200831, end: 20200831
  2. TRIPTODUR [Suspect]
     Active Substance: TRIPTORELIN
     Indication: PRECOCIOUS PUBERTY
     Dosage: UNK, SINGLE
     Route: 030
     Dates: start: 20190215, end: 20190215
  3. TRIPTODUR [Suspect]
     Active Substance: TRIPTORELIN
  4. TRIPTODUR [Suspect]
     Active Substance: TRIPTORELIN
     Dosage: UNK, SINGLE
     Route: 030
     Dates: start: 20210301, end: 20210301
  5. TRIPTODUR [Suspect]
     Active Substance: TRIPTORELIN

REACTIONS (7)
  - Seizure [Unknown]
  - Injection site reaction [Unknown]
  - Haematoma [Unknown]
  - Pyrexia [Unknown]
  - Irritability [Unknown]
  - Intentional self-injury [Unknown]
  - Aggression [Unknown]

NARRATIVE: CASE EVENT DATE: 20200831
